FAERS Safety Report 13731430 (Version 1)
Quarter: 2017Q3

REPORT INFORMATION
  Report Type: Spontaneous
  Country: JP (occurrence: JP)
  Receive Date: 20170707
  Receipt Date: 20170707
  Transmission Date: 20171127
  Serious: Yes (Death, Hospitalization)
  Sender: FDA-Public Use
  Company Number: JP-TEVA-783632ROM

PATIENT
  Age: 59 Year
  Sex: Female

DRUGS (2)
  1. DOCETAXEL. [Suspect]
     Active Substance: DOCETAXEL
     Indication: ENDOMETRIAL CANCER
     Route: 065
     Dates: start: 200710
  2. CARBOPLATIN. [Suspect]
     Active Substance: CARBOPLATIN
     Indication: ENDOMETRIAL CANCER
     Route: 065
     Dates: start: 200710

REACTIONS (2)
  - Myelodysplastic syndrome [Fatal]
  - Acute myeloid leukaemia [Fatal]
